FAERS Safety Report 10986017 (Version 1)
Quarter: 2015Q1

REPORT INFORMATION
  Report Type: Spontaneous
  Country: US (occurrence: None)
  Receive Date: 20150313
  Receipt Date: 20150313
  Transmission Date: 20150721
  Serious: Yes (Hospitalization)
  Sender: FDA-Public Use
  Company Number: 1348293

PATIENT
  Age: 53 Year
  Sex: Female

DRUGS (2)
  1. PREDNISONE. [Concomitant]
     Active Substance: PREDNISONE
  2. OMALIZUMAB (OMALIZUMAB) [Suspect]
     Active Substance: OMALIZUMAB
     Indication: ASTHMA
     Dosage: FOR 6 MONTHS (375 MG, 1 IN 2 WK), SUBCUTANEOUS
     Route: 058

REACTIONS (1)
  - Hypersensitivity [None]
